FAERS Safety Report 11350314 (Version 1)
Quarter: 2015Q3

REPORT INFORMATION
  Report Type: Spontaneous
  Country: US (occurrence: None)
  Receive Date: 20150805
  Receipt Date: 20150805
  Transmission Date: 20151125
  Serious: No
  Sender: FDA-Public Use
  Company Number: None

PATIENT
  Age: 60 Year
  Sex: Female

DRUGS (13)
  1. ACYCLOVIR. [Concomitant]
     Active Substance: ACYCLOVIR
  2. PIPERACILLIN/TAZOBACTAM [Concomitant]
     Active Substance: PIPERACILLIN SODIUM\TAZOBACTAM SODIUM
  3. TACROLIMUS. [Suspect]
     Active Substance: TACROLIMUS
     Indication: ALLOGENIC BONE MARROW TRANSPLANTATION THERAPY
     Route: 042
     Dates: start: 20140919, end: 20141105
  4. DAPTOMYCIN. [Concomitant]
     Active Substance: DAPTOMYCIN
  5. MYCOPHENOLATE [Concomitant]
     Active Substance: MYCOPHENOLIC ACID
  6. OXYCODONE [Concomitant]
     Active Substance: OXYCODONE
  7. AMLODIPINE [Concomitant]
     Active Substance: AMLODIPINE BESYLATE
  8. CASPOFUNGIN [Concomitant]
     Active Substance: CASPOFUNGIN
  9. LORAZEPAM. [Concomitant]
     Active Substance: LORAZEPAM
  10. ONDANSETRON [Concomitant]
     Active Substance: ONDANSETRON
  11. LANSOPRAZOLE. [Concomitant]
     Active Substance: LANSOPRAZOLE
  12. PROCHLORPERAZINE. [Concomitant]
     Active Substance: PROCHLORPERAZINE
  13. TEMAZEPAM. [Concomitant]
     Active Substance: TEMAZEPAM

REACTIONS (2)
  - Immunosuppressant drug level increased [None]
  - Tremor [None]

NARRATIVE: CASE EVENT DATE: 20140921
